FAERS Safety Report 6358686-0 (Version None)
Quarter: 2009Q3

REPORT INFORMATION
  Report Type: 
  Country: None (occurrence: None)
  Receive Date: 20090916
  Receipt Date: 20090713
  Transmission Date: 20100115
  Serious: No
  Sender: FDA-Public Use
  Company Number: US-ABBOTT-09P-163-0585679-00

PATIENT
  Sex: Female
  Weight: 77.18 kg

DRUGS (7)
  1. TRILIPIX [Suspect]
     Indication: BLOOD TRIGLYCERIDES INCREASED
     Route: 048
     Dates: start: 20090706, end: 20090710
  2. METFORMIN HCL [Concomitant]
     Indication: TYPE 2 DIABETES MELLITUS
     Route: 048
  3. PREMARIN [Concomitant]
     Indication: HORMONE REPLACEMENT THERAPY
     Route: 048
  4. ZOCOR [Concomitant]
     Indication: BLOOD CHOLESTEROL INCREASED
     Route: 048
  5. DESPIPRAMINE [Concomitant]
     Indication: DEPRESSION
     Route: 048
  6. DEPAKOTE [Concomitant]
     Indication: DEPRESSION
     Route: 048
  7. STELAZINE [Concomitant]
     Indication: DEPRESSION
     Route: 048

REACTIONS (1)
  - OEDEMA [None]
